FAERS Safety Report 21635285 (Version 3)
Quarter: 2023Q2

REPORT INFORMATION
  Report Type: Report from Study
  Country: US (occurrence: US)
  Receive Date: 20221123
  Receipt Date: 20230630
  Transmission Date: 20230721
  Serious: Yes (Hospitalization, Congenital Anomaly, Other)
  Sender: FDA-Public Use
  Company Number: US-GW PHARMA-2022-US-035837

PATIENT
  Sex: Female
  Weight: 30.4 kg

DRUGS (3)
  1. EPIDIOLEX [Suspect]
     Active Substance: CANNABIDIOL
     Indication: Product used for unknown indication
     Dosage: 4 ML BY GASTROSTOMY TUBE TWO TIMES A DAY
  2. BOTOX [Concomitant]
     Active Substance: ONABOTULINUMTOXINA
     Indication: Product used for unknown indication
     Dosage: UNK
  3. PHENOL [ASCORBIC ACID;GAMMA-AMINOBUTYRIC ACID;HISTAMINE] [Concomitant]
     Indication: Product used for unknown indication
     Dosage: UNK

REACTIONS (4)
  - Hypothermia [Unknown]
  - Pneumonia [Unknown]
  - Lethargy [Unknown]
  - Recalled product administered [Unknown]
